FAERS Safety Report 15052316 (Version 1)
Quarter: 2018Q2

REPORT INFORMATION
  Report Type: Spontaneous
  Country: US (occurrence: US)
  Receive Date: 20180622
  Receipt Date: 20180622
  Transmission Date: 20180711
  Serious: No
  Sender: FDA-Public Use
  Company Number: US-DENDREON PHARMACEUTICALS LLC-2017DEN000370

PATIENT
  Age: 73 Year
  Sex: Male
  Weight: 85.35 kg

DRUGS (3)
  1. PROVENGE [Suspect]
     Active Substance: SIPULEUCEL-T
     Indication: PROSTATE CANCER
     Dosage: 250 ML, QD
     Route: 042
     Dates: start: 20170911, end: 20170911
  2. PROVENGE [Suspect]
     Active Substance: SIPULEUCEL-T
     Dosage: 250 ML, QD
     Route: 042
     Dates: start: 20171030, end: 20171030
  3. PROVENGE [Suspect]
     Active Substance: SIPULEUCEL-T
     Dosage: 250 ML, QD
     Route: 042
     Dates: start: 20170925, end: 20170925

REACTIONS (2)
  - Adverse event [Unknown]
  - Urticaria [Unknown]

NARRATIVE: CASE EVENT DATE: 20171005
